FAERS Safety Report 10949087 (Version 1)
Quarter: 2015Q1

REPORT INFORMATION
  Report Type: Spontaneous
  Country: JP (occurrence: JP)
  Receive Date: 20150324
  Receipt Date: 20150324
  Transmission Date: 20150721
  Serious: Yes (Death, Hospitalization, Other)
  Sender: FDA-Public Use
  Company Number: JP-ASTELLAS-2006JP003612

PATIENT
  Sex: Male
  Weight: 64 kg

DRUGS (62)
  1. MEDICON [Concomitant]
     Active Substance: DEXTROMETHORPHAN HYDROBROMIDE
     Indication: BRONCHOPULMONARY ASPERGILLOSIS
     Route: 048
     Dates: start: 20050411, end: 20050803
  2. PREDNISOLONE. [Concomitant]
     Active Substance: PREDNISOLONE
     Route: 048
     Dates: start: 20050816, end: 20050818
  3. PREDNISOLONE. [Concomitant]
     Active Substance: PREDNISOLONE
     Route: 048
     Dates: start: 20050820, end: 20050820
  4. CIPROXAN-I.V. [Concomitant]
     Indication: SEPSIS
     Route: 041
     Dates: start: 20050702, end: 20050714
  5. METHOTREXATE [Concomitant]
     Active Substance: METHOTREXATE
     Route: 042
     Dates: start: 20050615, end: 20050615
  6. PREDONINE [Concomitant]
     Active Substance: PREDNISOLONE\PREDNISOLONE ACETATE\PREDNISOLONE SODIUM SUCCINATE
     Route: 048
     Dates: start: 20050816, end: 20050818
  7. PREDONINE [Concomitant]
     Active Substance: PREDNISOLONE\PREDNISOLONE ACETATE\PREDNISOLONE SODIUM SUCCINATE
     Route: 048
     Dates: start: 20050819, end: 20050819
  8. IMURAN [Concomitant]
     Active Substance: AZATHIOPRINE
     Indication: CHRONIC GRAFT VERSUS HOST DISEASE
     Route: 048
     Dates: start: 20050916, end: 20050923
  9. MEDICON [Concomitant]
     Active Substance: DEXTROMETHORPHAN HYDROBROMIDE
     Indication: BRONCHOPULMONARY ASPERGILLOSIS
  10. PREDNISOLONE. [Concomitant]
     Active Substance: PREDNISOLONE
     Indication: ACUTE GRAFT VERSUS HOST DISEASE
     Route: 048
     Dates: start: 20050719, end: 20050815
  11. SLOW-K [Concomitant]
     Active Substance: POTASSIUM CHLORIDE
     Indication: HYPOKALAEMIA
     Route: 048
     Dates: start: 20050805, end: 20050910
  12. PRODIF [Concomitant]
     Active Substance: FOSFLUCONAZOLE
     Indication: FUNGAL INFECTION
     Route: 041
     Dates: start: 20050531, end: 20050614
  13. GRAN [Concomitant]
     Active Substance: FILGRASTIM
     Route: 058
     Dates: start: 20050816, end: 20050823
  14. PREDONINE [Concomitant]
     Active Substance: PREDNISOLONE\PREDNISOLONE ACETATE\PREDNISOLONE SODIUM SUCCINATE
     Indication: CHRONIC GRAFT VERSUS HOST DISEASE
     Route: 048
     Dates: start: 20050916, end: 20050926
  15. PREDONINE [Concomitant]
     Active Substance: PREDNISOLONE\PREDNISOLONE ACETATE\PREDNISOLONE SODIUM SUCCINATE
     Route: 048
     Dates: start: 20050820, end: 20050820
  16. FIRSTCIN [Concomitant]
     Active Substance: CEFOZOPRAN HYDROCHLORIDE
     Indication: SEPSIS
     Route: 041
     Dates: start: 20050607, end: 20050618
  17. FUNGIZONE [Concomitant]
     Active Substance: AMPHOTERICIN B
     Indication: FUNGAL INFECTION
     Route: 041
     Dates: start: 20050520, end: 20050705
  18. ROHYPNOL [Concomitant]
     Active Substance: FLUNITRAZEPAM
     Indication: INSOMNIA
     Route: 041
     Dates: start: 20050926, end: 20051002
  19. PROGRAF [Suspect]
     Active Substance: TACROLIMUS\TACROLIMUS ANHYDROUS
     Indication: STEM CELL TRANSPLANT
     Dosage: UNK, UNK
     Route: 048
     Dates: start: 20050728, end: 20051001
  20. PREDNISOLONE. [Concomitant]
     Active Substance: PREDNISOLONE
     Route: 048
     Dates: start: 20050819, end: 20050819
  21. PREDONINE [Concomitant]
     Active Substance: PREDNISOLONE\PREDNISOLONE ACETATE\PREDNISOLONE SODIUM SUCCINATE
     Route: 048
     Dates: start: 20050821, end: 20050821
  22. PRODIF [Concomitant]
     Active Substance: FOSFLUCONAZOLE
     Indication: FUNGAL INFECTION
     Route: 041
     Dates: start: 20050531, end: 20050614
  23. MORPHINE HYDROCHLORIDE [Concomitant]
     Active Substance: MORPHINE HYDROCHLORIDE
     Indication: PAIN
     Route: 041
     Dates: start: 20050928, end: 20051001
  24. ULCERLMIN [Concomitant]
     Active Substance: SUCRALFATE
     Indication: GASTRITIS
     Route: 048
     Dates: start: 20050704, end: 20050713
  25. GRAN [Concomitant]
     Active Substance: FILGRASTIM
     Indication: WHITE BLOOD CELL COUNT DECREASED
     Route: 041
     Dates: start: 20050616, end: 20050630
  26. GRAN [Concomitant]
     Active Substance: FILGRASTIM
     Indication: UNRELATED DONOR BONE MARROW TRANSPLANTATION THERAPY
     Route: 058
     Dates: start: 20050630, end: 20050703
  27. GLYCEOL [Concomitant]
     Active Substance: GLYCERIN
     Indication: BRAIN OEDEMA
     Route: 041
     Dates: start: 20050822, end: 20050828
  28. GASTER [Concomitant]
     Active Substance: FAMOTIDINE
     Indication: GASTRIC ULCER
     Route: 048
     Dates: start: 20050408, end: 20050927
  29. MEROPEN [Concomitant]
     Active Substance: MEROPENEM
     Indication: SEPSIS
     Route: 041
     Dates: start: 20050714, end: 20050729
  30. FUTHAN [Concomitant]
     Active Substance: NAFAMOSTAT MESYLATE
     Indication: DISSEMINATED INTRAVASCULAR COAGULATION
     Route: 041
     Dates: start: 20050930, end: 20051002
  31. ZOVIRAX [Concomitant]
     Active Substance: ACYCLOVIR
     Indication: INFECTION PROPHYLAXIS
     Route: 048
     Dates: start: 20050602, end: 20050714
  32. PREDNISOLONE. [Concomitant]
     Active Substance: PREDNISOLONE
     Route: 048
     Dates: start: 20050822, end: 20050822
  33. TIENAM [Concomitant]
     Active Substance: CILASTATIN SODIUM\IMIPENEM
     Indication: SEPSIS
     Route: 041
     Dates: start: 20050622, end: 20050702
  34. FRAGMIN [Concomitant]
     Active Substance: DALTEPARIN SODIUM
     Indication: DISSEMINATED INTRAVASCULAR COAGULATION
     Route: 041
     Dates: start: 20051002, end: 20051002
  35. PENTAGIN [Concomitant]
     Active Substance: PENTAZOCINE HYDROCHLORIDE
     Indication: PAIN
     Route: 041
     Dates: start: 20050816, end: 20050926
  36. METHOTREXATE [Concomitant]
     Active Substance: METHOTREXATE
     Route: 042
     Dates: start: 20050612, end: 20050612
  37. TOLEDOMIN [Concomitant]
     Active Substance: MILNACIPRAN HYDROCHLORIDE
     Indication: DEPRESSION
     Route: 048
     Dates: start: 20050919, end: 20050927
  38. ALOSITOL [Concomitant]
     Active Substance: ALLOPURINOL
     Indication: HYPERURICAEMIA
     Route: 048
     Dates: start: 20050901, end: 20050927
  39. OMEPRAL [Concomitant]
     Active Substance: OMEPRAZOLE
     Indication: GASTRIC ULCER HAEMORRHAGE
     Route: 041
     Dates: start: 20050927, end: 20051001
  40. METHOTREXATE [Concomitant]
     Active Substance: METHOTREXATE
     Indication: GRAFT VERSUS HOST DISEASE
     Route: 042
     Dates: start: 20050610, end: 20050610
  41. PREDONINE [Concomitant]
     Active Substance: PREDNISOLONE\PREDNISOLONE ACETATE\PREDNISOLONE SODIUM SUCCINATE
     Route: 048
     Dates: start: 20050822, end: 20050822
  42. PREDONINE [Concomitant]
     Active Substance: PREDNISOLONE\PREDNISOLONE ACETATE\PREDNISOLONE SODIUM SUCCINATE
     Indication: GRAFT VERSUS HOST DISEASE
     Route: 041
     Dates: start: 20050927, end: 20051002
  43. BAKTAR [Concomitant]
     Active Substance: SULFAMETHOXAZOLE\TRIMETHOPRIM
     Indication: INFECTION PROPHYLAXIS
     Route: 048
     Dates: start: 20050704, end: 20050818
  44. HIRNAMIN [Concomitant]
     Active Substance: PHENOTHIAZINE
     Indication: DEPRESSION
     Route: 048
     Dates: start: 20050717, end: 20050927
  45. MEROPEN [Concomitant]
     Active Substance: MEROPENEM
     Route: 041
     Dates: start: 20050816, end: 20050906
  46. BACTAR [Concomitant]
     Active Substance: SULFAMERAZINE\TRIMETHOPRIM
     Indication: INFECTION PROPHYLAXIS
     Route: 048
     Dates: start: 20050704, end: 20050818
  47. VFEND [Concomitant]
     Active Substance: VORICONAZOLE
     Indication: BRONCHOPULMONARY ASPERGILLOSIS
     Route: 048
     Dates: start: 20050722, end: 20050927
  48. VFEND [Concomitant]
     Active Substance: VORICONAZOLE
     Indication: FUNGAL INFECTION
     Route: 041
     Dates: start: 20050706, end: 20050721
  49. MORPHINE [Concomitant]
     Active Substance: MORPHINE
     Indication: PAIN
     Route: 041
     Dates: start: 20050928, end: 20051001
  50. ZOVIRAX [Concomitant]
     Active Substance: ACYCLOVIR
     Indication: INFECTION PROPHYLAXIS
     Route: 048
     Dates: start: 20050602, end: 20050714
  51. URSO [Concomitant]
     Active Substance: URSODIOL
     Indication: LIVER DISORDER
     Route: 048
     Dates: start: 20050619, end: 20050713
  52. CIPROXAN [Concomitant]
     Active Substance: CIPROFLOXACIN
     Indication: SEPSIS
     Route: 041
     Dates: start: 20050702, end: 20050714
  53. FOY [Concomitant]
     Active Substance: GABEXATE MESYLATE
     Indication: DISSEMINATED INTRAVASCULAR COAGULATION
     Route: 041
     Dates: start: 20050607, end: 20050613
  54. KAYTWO N [Concomitant]
     Active Substance: MENATETRENONE
     Indication: DISSEMINATED INTRAVASCULAR COAGULATION
     Route: 041
     Dates: start: 20050930, end: 20051002
  55. PROGRAF [Suspect]
     Active Substance: TACROLIMUS\TACROLIMUS ANHYDROUS
     Indication: STEM CELL TRANSPLANT
     Dosage: UNK, UNK
     Route: 042
     Dates: start: 20050608, end: 20050727
  56. BIOFERMIN R [Concomitant]
     Active Substance: BACILLUS SUBTILIS\LACTOBACILLUS ACIDOPHILUS\STREPTOCOCCUS FAECAIS
     Indication: DIARRHOEA
     Route: 048
     Dates: start: 20050627, end: 20050920
  57. PREDNISOLONE. [Concomitant]
     Active Substance: PREDNISOLONE
     Route: 048
     Dates: start: 20050816, end: 20050816
  58. PREDNISOLONE. [Concomitant]
     Active Substance: PREDNISOLONE
     Route: 048
     Dates: start: 20050821, end: 20050821
  59. PREDNISOLONE. [Concomitant]
     Active Substance: PREDNISOLONE
     Route: 048
     Dates: start: 20050916, end: 20050927
  60. PREDONINE [Concomitant]
     Active Substance: PREDNISOLONE\PREDNISOLONE ACETATE\PREDNISOLONE SODIUM SUCCINATE
     Indication: ACUTE GRAFT VERSUS HOST DISEASE
     Route: 048
     Dates: start: 20050719
  61. TARGOCID [Concomitant]
     Active Substance: TEICOPLANIN
     Indication: SEPSIS
     Route: 041
     Dates: start: 20050626, end: 20050702
  62. OMEGACIN [Concomitant]
     Active Substance: BIAPENEM
     Indication: SEPSIS
     Route: 041
     Dates: start: 20051001, end: 20051001

REACTIONS (4)
  - Herpes zoster disseminated [Fatal]
  - Viral haemorrhagic cystitis [Recovering/Resolving]
  - Cytomegalovirus test positive [Recovered/Resolved]
  - Aspergillus infection [Unknown]
